FAERS Safety Report 6187907-2 (Version None)
Quarter: 2009Q2

REPORT INFORMATION
  Report Type: 
  Country: None (occurrence: None)
  Receive Date: 20090513
  Receipt Date: 20090511
  Transmission Date: 20091009
  Serious: Yes (Hospitalization)
  Sender: FDA-Public Use
  Company Number: US-BRISTOL-MYERS SQUIBB COMPANY-14526701

PATIENT
  Age: 50 Year
  Sex: Male

DRUGS (23)
  1. ATAZANAVIR SULFATE [Suspect]
     Indication: HIV INFECTION
     Route: 048
     Dates: start: 20070629
  2. RITONAVIR [Suspect]
     Indication: HIV INFECTION
     Dosage: RITONAVIR CAPSULE
     Route: 048
     Dates: start: 20070629
  3. EPZICOM [Suspect]
     Indication: HIV INFECTION
     Dosage: 1 DF = ABACAVIR SULPHATE+LAMIVUDINE 600/300MG
     Route: 048
     Dates: start: 20070629
  4. MIDAZOLAM HCL [Concomitant]
     Dates: start: 20090224, end: 20090224
  5. FENTANYL [Concomitant]
     Dates: start: 20090224, end: 20090224
  6. HEPARIN [Concomitant]
     Dosage: ALSO FROM 05-MAY-2009
     Dates: start: 20090224, end: 20090224
  7. NITROGLYCERIN [Concomitant]
     Dates: start: 20090224, end: 20090224
  8. INSULIN [Concomitant]
     Dosage: INTERMEDIATE/LONG-ACTING INSULIN
  9. INSULIN LISPRO [Concomitant]
  10. ATORVASTATIN CALCIUM [Concomitant]
  11. FENOFIBRATE [Concomitant]
  12. LEVOTHYROXINE SODIUM [Concomitant]
  13. FLUOXETINE HCL [Concomitant]
  14. LISINOPRIL [Concomitant]
  15. HYDROCHLOROTHIAZIDE [Concomitant]
  16. DRONABINOL [Concomitant]
  17. ASPIRIN [Concomitant]
  18. CLOPIDOGREL BISULFATE [Concomitant]
  19. ZOLPIDEM TARTRATE [Concomitant]
  20. LORATADINE [Concomitant]
  21. ZIPRASIDONE HCL [Concomitant]
     Dosage: TAKEN AS ZIPRASIDONE HCL
  22. ACETYLCYSTEINE [Concomitant]
     Dates: start: 20090505
  23. PERCOCET [Concomitant]
     Dates: start: 20090505, end: 20090506

REACTIONS (1)
  - PERIPHERAL VASCULAR DISORDER [None]
